FAERS Safety Report 7227890-1 (Version None)
Quarter: 2011Q1

REPORT INFORMATION
  Report Type: 
  Country: None (occurrence: None)
  Receive Date: 20110114
  Receipt Date: 20110106
  Transmission Date: 20110831
  Serious: Yes (Hospitalization, Other)
  Sender: FDA-Public Use
  Company Number: US-MERCK-1001USA01549

PATIENT
  Age: 59 Year
  Sex: Female
  Weight: 67 kg

DRUGS (6)
  1. FOSAMAX [Suspect]
     Indication: OSTEOPOROSIS
     Route: 048
     Dates: start: 20030101, end: 20090201
  2. FOSAMAX PLUS D [Suspect]
     Indication: OSTEOPOROSIS
     Route: 048
     Dates: start: 20070928
  3. FOSAMAX [Suspect]
     Route: 048
     Dates: start: 20010524
  4. ALENDRONATE SODIUM [Suspect]
     Route: 065
     Dates: start: 20080229, end: 20090102
  5. FEMHRT [Concomitant]
     Route: 065
     Dates: start: 19830101
  6. CELEBREX [Concomitant]
     Indication: ARTHRITIS
     Route: 065
     Dates: start: 19990101, end: 20070101

REACTIONS (35)
  - EXOSTOSIS [None]
  - CARPAL TUNNEL SYNDROME [None]
  - IMPAIRED HEALING [None]
  - ORAL TORUS [None]
  - ROAD TRAFFIC ACCIDENT [None]
  - STRESS [None]
  - ORAL INFECTION [None]
  - SKIN DISORDER [None]
  - DENTAL CARIES [None]
  - SPINAL COLUMN STENOSIS [None]
  - DIVERTICULUM INTESTINAL [None]
  - CONTUSION [None]
  - ANXIETY [None]
  - MUSCULOSKELETAL PAIN [None]
  - GLOSSITIS [None]
  - ARTHROPATHY [None]
  - BREAST DISORDER [None]
  - STOMATITIS [None]
  - RADICULOPATHY [None]
  - MUCOSAL INFLAMMATION [None]
  - MOUTH ULCERATION [None]
  - OSTEOARTHRITIS [None]
  - OSTEONECROSIS [None]
  - VENTRICULAR EXTRASYSTOLES [None]
  - ACROCHORDON [None]
  - CONFUSIONAL STATE [None]
  - INTERVERTEBRAL DISC DEGENERATION [None]
  - OSTEONECROSIS OF JAW [None]
  - LIMB INJURY [None]
  - CHEST PAIN [None]
  - SCIATICA [None]
  - OSTEOPENIA [None]
  - MUSCULOSKELETAL DISCOMFORT [None]
  - FALL [None]
  - SCRATCH [None]
